FAERS Safety Report 17224403 (Version 1)
Quarter: 2020Q1

REPORT INFORMATION
  Report Type: Spontaneous
  Country: US (occurrence: US)
  Receive Date: 20200102
  Receipt Date: 20200102
  Transmission Date: 20200409
  Serious: Yes (Other)
  Sender: FDA-Public Use
  Company Number: US-PFIZER INC-2017085903

PATIENT
  Age: 76 Year
  Sex: Female

DRUGS (6)
  1. LEVOTHYROXINE SODIUM. [Concomitant]
     Active Substance: LEVOTHYROXINE SODIUM
     Dosage: 100 UG, ALTERNATE DAY (ON AN EMPTY STOMACH IN THE MORNING)
     Route: 048
  2. LYRICA [Suspect]
     Active Substance: PREGABALIN
     Indication: NEUROPATHY PERIPHERAL
     Dosage: 50 MG, 4X/DAY [1 CAPSULE 4 TIMES A DAY 30]
     Route: 048
  3. LYRICA [Suspect]
     Active Substance: PREGABALIN
     Indication: NEUROPATHY PERIPHERAL
     Dosage: 100 MG, 2X/DAY [2 CAPSULES TWICE A DAY]
     Route: 048
  4. LEVOTHYROXINE SODIUM. [Concomitant]
     Active Substance: LEVOTHYROXINE SODIUM
     Dosage: 1 DF, ALTERNATE DAY
     Route: 048
  5. ATORVASTATIN CALCIUM. [Concomitant]
     Active Substance: ATORVASTATIN CALCIUM
     Dosage: 0.5 DF, 1X/DAY [1/2 (HALF) TABLET]
     Route: 048
  6. LYRICA [Suspect]
     Active Substance: PREGABALIN
     Indication: SPINOCEREBELLAR DISORDER
     Dosage: 75 MG, 1X/DAY [1 CAPSULE ONCE A DAY, BEDTIME 30 DAYS]
     Route: 048

REACTIONS (2)
  - Mutism [Unknown]
  - Multiple sclerosis [Unknown]
